FAERS Safety Report 8232221-4 (Version None)
Quarter: 2012Q1

REPORT INFORMATION
  Report Type: 
  Country: None (occurrence: None)
  Receive Date: 20120323
  Receipt Date: 20120316
  Transmission Date: 20120608
  Serious: Yes (Life-Threatening)
  Sender: FDA-Public Use
  Company Number: DE-CELGENEUS-062-50794-12031805

PATIENT
  Age: 68 Year
  Sex: Female

DRUGS (2)
  1. CYTARABINE [Suspect]
     Dosage: 3600 MILLIGRAM
     Route: 065
     Dates: start: 20120222, end: 20120224
  2. VIDAZA [Suspect]
     Route: 050

REACTIONS (1)
  - SEPTIC SHOCK [None]
